FAERS Safety Report 5764797-0 (Version None)
Quarter: 2008Q2

REPORT INFORMATION
  Report Type: 
  Country: None (occurrence: None)
  Receive Date: 20080611
  Receipt Date: 20080530
  Transmission Date: 20081010
  Serious: Yes (Life-Threatening, Hospitalization)
  Sender: FDA-Public Use
  Company Number: JP-TYCO HEALTHCARE/MALLINCKRODT-T200800923

PATIENT

DRUGS (1)
  1. OPTIRAY 300 [Suspect]
     Indication: COMPUTERISED TOMOGRAM
     Dosage: 100 ML, SINGLE
     Route: 042
     Dates: start: 20080529, end: 20080529

REACTIONS (6)
  - ABDOMINAL PAIN [None]
  - ANAPHYLACTIC SHOCK [None]
  - HEADACHE [None]
  - OXYGEN SATURATION DECREASED [None]
  - PRURITUS [None]
  - SNEEZING [None]
